FAERS Safety Report 5489778-6 (Version None)
Quarter: 2007Q4

REPORT INFORMATION
  Report Type: 
  Country: None (occurrence: None)
  Receive Date: 20071018
  Receipt Date: 20071009
  Transmission Date: 20080405
  Serious: Yes (Other)
  Sender: FDA-Public Use
  Company Number: FR-JNJFOC-20071002495

PATIENT
  Age: 17 Year
  Sex: Male
  Weight: 66 kg

DRUGS (2)
  1. REMICADE [Suspect]
     Indication: CROHN'S DISEASE
     Dosage: 3RD INFUSION OF SECOND SERIES
     Route: 042
  2. IMUREL [Suspect]
     Indication: CROHN'S DISEASE

REACTIONS (2)
  - LEUKOPENIA [None]
  - NEUTROPENIA [None]
